FAERS Safety Report 8998443 (Version 1)
Quarter: 2013Q1

REPORT INFORMATION
  Report Type: Spontaneous
  Country: ES (occurrence: ES)
  Receive Date: 20130103
  Receipt Date: 20130103
  Transmission Date: 20140127
  Serious: Yes (Other)
  Sender: FDA-Public Use
  Company Number: ES-PFIZER INC-2012331291

PATIENT
  Sex: Male
  Weight: 1.72 kg

DRUGS (2)
  1. CISPLATIN [Suspect]
     Indication: NON-SMALL CELL LUNG CANCER
     Dosage: 75 MG/M2, CYCLIC (EVERY 21 DAYS)
     Route: 064
  2. PACLITAXEL [Suspect]
     Indication: NON-SMALL CELL LUNG CANCER
     Dosage: 175 MG/M2, CYCLIC (EVERY 21 DAYS)
     Route: 064

REACTIONS (2)
  - Maternal exposure timing unspecified [Recovered/Resolved]
  - Acute respiratory distress syndrome [Recovered/Resolved]
